FAERS Safety Report 11592238 (Version 1)
Quarter: 2015Q4

REPORT INFORMATION
  Report Type: Spontaneous
  Country: US (occurrence: US)
  Receive Date: 20151005
  Receipt Date: 20151005
  Transmission Date: 20160304
  Serious: Yes (Other)
  Sender: FDA-Public Use
  Company Number: US-AUROBINDO PHARMA LTD-AUR-APL-2014-06113

PATIENT
  Age: 21 Year
  Sex: Male

DRUGS (4)
  1. VALSARTAN 160MG [Suspect]
     Active Substance: VALSARTAN
     Indication: PRODUCT USED FOR UNKNOWN INDICATION
     Dosage: 160 MG, UNK
     Route: 065
  2. LISINOPRIL. [Suspect]
     Active Substance: LISINOPRIL
     Indication: RENAL DISORDER
     Dosage: 20 MG, DAILY
     Route: 065
  3. DIOVAN [Suspect]
     Active Substance: VALSARTAN
     Indication: RENAL DISORDER
     Dosage: 160 MG, DAILY
     Route: 065
  4. PREDNISONE. [Concomitant]
     Active Substance: PREDNISONE
     Indication: PRODUCT USED FOR UNKNOWN INDICATION
     Route: 065

REACTIONS (2)
  - Anaemia [Recovered/Resolved]
  - Haemoglobin decreased [Recovered/Resolved]
